FAERS Safety Report 12347576 (Version 1)
Quarter: 2016Q2

REPORT INFORMATION
  Report Type: Spontaneous
  Country: US (occurrence: US)
  Receive Date: 20160509
  Receipt Date: 20160509
  Transmission Date: 20160815
  Serious: No
  Sender: FDA-Public Use
  Company Number: US-MEDA-2015040044

PATIENT
  Sex: Male

DRUGS (1)
  1. EDLUAR [Suspect]
     Active Substance: ZOLPIDEM TARTRATE

REACTIONS (3)
  - Middle insomnia [Unknown]
  - Sleep-related eating disorder [Unknown]
  - Drug ineffective [Unknown]
